FAERS Safety Report 13950864 (Version 1)
Quarter: 2017Q3

REPORT INFORMATION
  Report Type: Spontaneous
  Country: US (occurrence: US)
  Receive Date: 20170908
  Receipt Date: 20170908
  Transmission Date: 20171128
  Serious: Yes (Other)
  Sender: FDA-Public Use
  Company Number: US-ROCHE-1131234

PATIENT
  Age: 67 Year
  Sex: Male

DRUGS (6)
  1. DEMEROL [Concomitant]
     Active Substance: MEPERIDINE HYDROCHLORIDE
     Route: 042
     Dates: start: 20001030
  2. RITUXAN [Suspect]
     Active Substance: RITUXIMAB
     Dosage: 100 CC/HOUR
     Route: 065
     Dates: start: 20001030
  3. PEPSIN [Concomitant]
     Active Substance: PEPSIN
     Route: 065
     Dates: start: 20001113
  4. RITUXAN [Suspect]
     Active Substance: RITUXIMAB
     Dosage: 150 CC/HOUR
     Route: 065
     Dates: start: 20001030
  5. RITUXAN [Suspect]
     Active Substance: RITUXIMAB
     Indication: CHRONIC LYMPHOCYTIC LEUKAEMIA
     Route: 065
     Dates: start: 20001030
  6. RITUXAN [Suspect]
     Active Substance: RITUXIMAB
     Dosage: 200 CC/HOUR
     Route: 065
     Dates: start: 20001030

REACTIONS (3)
  - Chills [Unknown]
  - Oxygen saturation decreased [Unknown]
  - Abdominal discomfort [Unknown]

NARRATIVE: CASE EVENT DATE: 20001030
